FAERS Safety Report 4494652-8 (Version None)
Quarter: 2004Q4

REPORT INFORMATION
  Report Type: 
  Country: None (occurrence: None)
  Receive Date: 20041103
  Receipt Date: 20041018
  Transmission Date: 20050328
  Serious: Yes (Hospitalization)
  Sender: FDA-Public Use
  Company Number: 209845

PATIENT
  Age: 48 Year
  Sex: Male

DRUGS (7)
  1. AVASTIN [Suspect]
     Indication: COLORECTAL CANCER METASTATIC
     Dosage: 5 MG/KG, Q3W, INTRAVENOUS
     Route: 042
     Dates: start: 20040831
  2. OXALIPLATIN (OXALIPLATIN) [Suspect]
     Indication: COLORECTAL CANCER METASTATIC
     Dosage: 85MG/M2, Q3W, INTRVANEOUS
     Route: 042
     Dates: start: 20040831
  3. FOLINIC ACID (LEUOCVORIN CALCIUM) [Suspect]
     Indication: COLORECTAL CANCER METASTATIC
     Dosage: 200 MG/M2, INTRAVENOUS
     Route: 042
     Dates: start: 20040831
  4. FLUOROURACIL [Suspect]
     Indication: COLORECTAL CANCER METASTATIC
     Dosage: 1 G/M2, INTRAVENOUS
     Route: 042
     Dates: start: 20040831
  5. BISOPROLOL FUMARATE [Concomitant]
  6. BEXTRA [Concomitant]
  7. ACETYLCYSTEINE [Concomitant]

REACTIONS (4)
  - ANAEMIA [None]
  - ASTHENIA [None]
  - PERITONITIS [None]
  - PYREXIA [None]
